FAERS Safety Report 14691398 (Version 1)
Quarter: 2018Q1

REPORT INFORMATION
  Report Type: Spontaneous
  Country: TR (occurrence: TR)
  Receive Date: 20180328
  Receipt Date: 20180328
  Transmission Date: 20180509
  Serious: Yes (Other)
  Sender: FDA-Public Use
  Company Number: TR-009507513-1803TUR008297

PATIENT
  Age: 84 Year
  Sex: Male
  Weight: 80 kg

DRUGS (4)
  1. INVANZ [Suspect]
     Active Substance: ERTAPENEM SODIUM
     Indication: UPPER RESPIRATORY TRACT INFECTION
     Dosage: IV, 1G
     Route: 042
     Dates: start: 20180305, end: 20180313
  2. STALEVO [Concomitant]
     Active Substance: CARBIDOPA\ENTACAPONE\LEVODOPA
     Dosage: ORAL, 150 MG
     Route: 048
  3. EBIXA [Concomitant]
     Active Substance: MEMANTINE HYDROCHLORIDE
     Dosage: ORAL, 10 MG
     Route: 048
  4. DELIX (RAMIPRIL) [Concomitant]
     Active Substance: RAMIPRIL
     Dosage: ORAL 5 MG
     Route: 048

REACTIONS (1)
  - Epilepsy [Recovered/Resolved]

NARRATIVE: CASE EVENT DATE: 20180313
